FAERS Safety Report 8000148-9 (Version None)
Quarter: 2011Q4

REPORT INFORMATION
  Report Type: 
  Country: None (occurrence: None)
  Receive Date: 20111220
  Receipt Date: 20111220
  Transmission Date: 20120403
  Serious: Yes (Hospitalization)
  Sender: FDA-Public Use
  Company Number: None

PATIENT
  Sex: Male
  Weight: 89 kg

DRUGS (6)
  1. FLOMAX [Concomitant]
  2. CISPLATIN [Suspect]
     Dosage: 156 MG
     Dates: end: 20110524
  3. CYCLOBENZAPRINE [Concomitant]
  4. DILANTIN [Concomitant]
  5. PHENOBARBITAL TAB [Concomitant]
  6. TAXOTERE [Suspect]
     Dosage: 156 MG
     Dates: end: 20110524

REACTIONS (4)
  - HYPOTENSION [None]
  - NEUTROPENIA [None]
  - PNEUMONIA ASPIRATION [None]
  - CLOSTRIDIAL INFECTION [None]
